FAERS Safety Report 13925244 (Version 1)
Quarter: 2017Q3

REPORT INFORMATION
  Report Type: Spontaneous
  Country: BR (occurrence: BR)
  Receive Date: 20170831
  Receipt Date: 20170831
  Transmission Date: 20171127
  Serious: Yes (Other)
  Sender: FDA-Public Use
  Company Number: BR-009507513-1708BRA012257

PATIENT
  Age: 37 Year
  Sex: Female
  Weight: 68 kg

DRUGS (2)
  1. ORGALUTRAN [Suspect]
     Active Substance: GANIRELIX ACETATE
     Indication: IN VITRO FERTILISATION
     Dosage: 0.5 ML, QD
     Route: 058
     Dates: start: 20170822
  2. GONAL-F [Concomitant]
     Active Substance: FOLLITROPIN
     Indication: IN VITRO FERTILISATION
     Dosage: 187.5 DF, QD
     Route: 058
     Dates: start: 20170818

REACTIONS (6)
  - Haemorrhage [Recovered/Resolved]
  - Injection site pain [Recovered/Resolved]
  - Abdominal pain [Not Recovered/Not Resolved]
  - Off label use [Not Recovered/Not Resolved]
  - Abdominal discomfort [Not Recovered/Not Resolved]
  - Injection site induration [Unknown]

NARRATIVE: CASE EVENT DATE: 20170822
